FAERS Safety Report 21669351 (Version 3)
Quarter: 2023Q1

REPORT INFORMATION
  Report Type: Spontaneous
  Country: US (occurrence: US)
  Receive Date: 20221201
  Receipt Date: 20230111
  Transmission Date: 20230417
  Serious: Yes (Other)
  Sender: FDA-Public Use
  Company Number: US-BRISTOL-MYERS SQUIBB COMPANY-2022-146337

PATIENT
  Age: 88 Year
  Sex: Female
  Weight: 75 kg

DRUGS (1)
  1. REVLIMID [Suspect]
     Active Substance: LENALIDOMIDE
     Indication: Diffuse large B-cell lymphoma
     Dosage: FREQUENCY-DAILY 1-21, THEN 7 DAYS OFF
     Route: 048
     Dates: start: 20220624

REACTIONS (5)
  - Rash [Not Recovered/Not Resolved]
  - Burning sensation [Unknown]
  - Lower limb fracture [Unknown]
  - Off label use [Unknown]
  - COVID-19 [Recovered/Resolved]

NARRATIVE: CASE EVENT DATE: 20221024
